FAERS Safety Report 15360490 (Version 5)
Quarter: 2019Q2

REPORT INFORMATION
  Report Type: Spontaneous
  Country: US (occurrence: US)
  Receive Date: 20180907
  Receipt Date: 20190517
  Transmission Date: 20190711
  Serious: Yes (Hospitalization, Other)
  Sender: FDA-Public Use
  Company Number: US-TAKEDA-2018MPI011008

PATIENT
  Age: 81 Year
  Sex: Female
  Weight: 57 kg

DRUGS (3)
  1. NINLARO [Suspect]
     Active Substance: IXAZOMIB CITRATE
     Indication: PLASMA CELL MYELOMA
     Dosage: 4 MILLIGRAM
     Route: 048
     Dates: start: 20180719
  2. NINLARO [Suspect]
     Active Substance: IXAZOMIB CITRATE
     Dosage: 3 MILLIGRAM
     Route: 048
  3. POMALYST [Concomitant]
     Active Substance: POMALIDOMIDE
     Dosage: UNK
     Route: 065

REACTIONS (9)
  - Influenza [Unknown]
  - Atrial fibrillation [Unknown]
  - Peripheral swelling [Unknown]
  - Hypoaesthesia [Unknown]
  - Off label use [Unknown]
  - Plasma cell myeloma [Unknown]
  - Fall [Unknown]
  - Asthenia [Unknown]
  - Fatigue [Unknown]

NARRATIVE: CASE EVENT DATE: 20190117
